FAERS Safety Report 23325383 (Version 1)
Quarter: 2023Q4

REPORT INFORMATION
  Report Type: Other
  Country: CA (occurrence: CA)
  Receive Date: 20231221
  Receipt Date: 20231221
  Transmission Date: 20240110
  Serious: Yes (Other)
  Sender: FDA-Public Use
  Company Number: CA-APOTEX-2023AP018054

PATIENT
  Age: 39 Year

DRUGS (3)
  1. OMEPRAZOLE [Suspect]
     Active Substance: OMEPRAZOLE
     Indication: Chronic spontaneous urticaria
     Dosage: 20 MILLIGRAM
     Route: 065
  2. PIMECROLIMUS [Suspect]
     Active Substance: PIMECROLIMUS
     Indication: Chronic spontaneous urticaria
     Dosage: 1 PERCENT
     Route: 065
  3. PIMECROLIMUS [Suspect]
     Active Substance: PIMECROLIMUS
     Indication: Rosacea
     Dosage: UNK
     Route: 065

REACTIONS (6)
  - Androgenetic alopecia [Unknown]
  - Chronic cutaneous lupus erythematosus [Unknown]
  - Chronic spontaneous urticaria [Unknown]
  - Lichen nitidus [Unknown]
  - Rosacea [Unknown]
  - Rash [Unknown]
